FAERS Safety Report 4624303-0 (Version None)
Quarter: 2005Q1

REPORT INFORMATION
  Report Type: 
  Country: None (occurrence: None)
  Receive Date: 20050331
  Receipt Date: 20050323
  Transmission Date: 20050727
  Serious: Yes (Hospitalization)
  Sender: FDA-Public Use
  Company Number: JP-ABBOTT-05P-087-0295178-00

PATIENT
  Age: 9 Year
  Sex: Male
  Weight: 44 kg

DRUGS (11)
  1. CLARITH [Suspect]
     Indication: BRONCHITIS ACUTE
     Route: 048
     Dates: start: 20041024, end: 20041025
  2. THEOPHYLLINE [Suspect]
     Indication: ASTHMA
     Route: 048
     Dates: start: 20041025, end: 20041025
  3. AZITHROMYCIN DIHYDRATE [Suspect]
     Indication: BRONCHITIS ACUTE
     Route: 048
     Dates: start: 20041025, end: 20041025
  4. AZITHROMYCIN DIHYDRATE [Suspect]
     Route: 048
     Dates: start: 20041025, end: 20041025
  5. DIMEMORFAN PHOSPHATE [Concomitant]
     Indication: BRONCHITIS ACUTE
     Route: 048
     Dates: start: 20041025, end: 20041103
  6. AMBROXOL HYDROCHLORIDE [Concomitant]
     Indication: BRONCHITIS ACUTE
     Route: 048
     Dates: start: 20041024, end: 20041124
  7. MEQUITAZINE [Concomitant]
     Indication: ASTHMA
     Route: 048
     Dates: start: 20041025, end: 20041124
  8. CARBOCISTEINE [Concomitant]
     Indication: BRONCHITIS ACUTE
     Route: 048
     Dates: start: 20041025, end: 20041124
  9. MONTELUKAST SODIUM [Concomitant]
     Indication: ASTHMA
     Route: 048
     Dates: start: 20020924
  10. SALMETEROL XINAFOATE [Concomitant]
     Indication: ASTHMA
     Route: 055
     Dates: start: 20031008
  11. SALBUTAMOL SULFATE [Concomitant]
     Indication: DRUG USE FOR UNKNOWN INDICATION
     Route: 055
     Dates: start: 20041025

REACTIONS (2)
  - CHEST PAIN [None]
  - STATUS ASTHMATICUS [None]
